FAERS Safety Report 11573632 (Version 1)
Quarter: 2015Q3

REPORT INFORMATION
  Report Type: Spontaneous
  Country: US (occurrence: US)
  Receive Date: 20150929
  Receipt Date: 20150929
  Transmission Date: 20151125
  Serious: Yes (Other)
  Sender: FDA-Public Use
  Company Number: US-SUNOVION-2015SUN000337

PATIENT
  Sex: Female

DRUGS (2)
  1. FYCOMPA [Concomitant]
     Active Substance: PERAMPANEL
     Dosage: UNK
  2. APTIOM [Suspect]
     Active Substance: ESLICARBAZEPINE ACETATE
     Indication: PARTIAL SEIZURES
     Dosage: 600 MG, QD
     Route: 048

REACTIONS (2)
  - Seizure [Unknown]
  - Hyponatraemia [Unknown]
